FAERS Safety Report 18848309 (Version 1)
Quarter: 2021Q1

REPORT INFORMATION
  Report Type: Spontaneous
  Country: US (occurrence: US)
  Receive Date: 20210204
  Receipt Date: 20210204
  Transmission Date: 20210419
  Serious: No
  Sender: FDA-Public Use
  Company Number: US-BAYER-2021-040940

PATIENT
  Age: 76 Year
  Sex: Female

DRUGS (4)
  1. ALBUTEROL SULFATE. [Concomitant]
     Active Substance: ALBUTEROL SULFATE
  2. CLARITIN [Suspect]
     Active Substance: LORATADINE
     Indication: COVID-19
     Dosage: 1 DF
     Route: 048
     Dates: start: 20201018
  3. CLARITIN [Suspect]
     Active Substance: LORATADINE
     Indication: HYPERSENSITIVITY
     Dosage: 1 DF
     Route: 048
  4. CLARITIN [Suspect]
     Active Substance: LORATADINE
     Indication: NASOPHARYNGITIS

REACTIONS (5)
  - Dehydration [None]
  - Off label use [Unknown]
  - Tongue blistering [Unknown]
  - Tongue ulceration [Unknown]
  - Drug ineffective for unapproved indication [None]

NARRATIVE: CASE EVENT DATE: 20201018
